FAERS Safety Report 7782680-6 (Version None)
Quarter: 2011Q3

REPORT INFORMATION
  Report Type: 
  Country: None (occurrence: None)
  Receive Date: 20110928
  Receipt Date: 20110920
  Transmission Date: 20111222
  Serious: Yes (Other)
  Sender: FDA-Public Use
  Company Number: DE-UCBSA-041062

PATIENT
  Sex: Female
  Weight: 53 kg

DRUGS (4)
  1. VIMPAT [Suspect]
     Indication: EPILEPSY
     Route: 048
     Dates: start: 20110907, end: 20110909
  2. KEPPRA [Concomitant]
     Indication: EPILEPSY
     Route: 048
     Dates: start: 20110312
  3. VENLAFAXINE HYDROCHLORIDE [Concomitant]
     Indication: DEPRESSION
     Route: 048
  4. SEROQUEL [Concomitant]
     Indication: DEPRESSION
     Route: 048

REACTIONS (4)
  - HEADACHE [None]
  - HYPOAESTHESIA [None]
  - EPILEPSY [None]
  - EPILEPTIC AURA [None]
